FAERS Safety Report 9677959 (Version 2)
Quarter: 2014Q1

REPORT INFORMATION
  Report Type: Spontaneous
  Country: JP (occurrence: JP)
  Receive Date: 20131108
  Receipt Date: 20140217
  Transmission Date: 20141002
  Serious: Yes (Life-Threatening)
  Sender: FDA-Public Use
  Company Number: JP-ASTRAZENECA-2013SE80495

PATIENT
  Age: 6 Year
  Sex: Female
  Weight: 20 kg

DRUGS (6)
  1. DIPRIVAN [Suspect]
     Indication: INDUCTION OF ANAESTHESIA
     Route: 042
     Dates: start: 20120720, end: 20120720
  2. ULTIVA [Suspect]
     Indication: MAINTENANCE OF ANAESTHESIA
     Route: 042
     Dates: start: 20120720, end: 20120720
  3. ESLAX [Suspect]
     Indication: HYPOTONIA
     Route: 042
     Dates: start: 20120720, end: 20120720
  4. OXYGEN [Suspect]
     Indication: MAINTENANCE OF ANAESTHESIA
     Dosage: DOSE UNKNOWN
     Route: 055
     Dates: start: 20120720, end: 20120720
  5. SEVOFLURANE [Suspect]
     Indication: MAINTENANCE OF ANAESTHESIA
     Route: 055
     Dates: start: 20120720, end: 20120720
  6. MIDAZOLAM [Suspect]
     Indication: ENDOTRACHEAL INTUBATION
     Route: 041
     Dates: start: 20120720, end: 20120720

REACTIONS (1)
  - Asthma [Recovering/Resolving]
